FAERS Safety Report 5813767-2 (Version None)
Quarter: 2008Q3

REPORT INFORMATION
  Report Type: 
  Country: None (occurrence: None)
  Receive Date: 20080717
  Receipt Date: 20080709
  Transmission Date: 20090109
  Serious: Yes (Congenital Anomaly)
  Sender: FDA-Public Use
  Company Number: PHFR2006GB01459

PATIENT
  Sex: Female
  Weight: 2.68 kg

DRUGS (5)
  1. GLEEVEC [Suspect]
     Dosage: UNK, UNK
     Route: 064
     Dates: end: 20050729
  2. INTRON A [Suspect]
     Dosage: UNK, UNK
     Route: 064
     Dates: end: 20050729
  3. INTRON A [Suspect]
     Dosage: UNK, UNK
     Route: 064
     Dates: start: 20051107
  4. NEUPOGEN [Concomitant]
     Dosage: UNK, UNK
     Route: 064
  5. WINRHO [Concomitant]
     Route: 064

REACTIONS (2)
  - DRUG EXPOSURE DURING PREGNANCY [None]
  - FINGER HYPOPLASIA [None]
